FAERS Safety Report 5976901-X (Version None)
Quarter: 2008Q4

REPORT INFORMATION
  Report Type: 
  Country: None (occurrence: None)
  Receive Date: 20081125
  Receipt Date: 20081114
  Transmission Date: 20090506
  Serious: Yes (Hospitalization)
  Sender: FDA-Public Use
  Company Number: 2008SP023150

PATIENT
  Age: 73 Year
  Sex: Female

DRUGS (6)
  1. PEG-INTRON [Suspect]
     Indication: HEPATITIS C
     Dosage: 0.5 MCG; QW; SC
     Route: 058
     Dates: start: 20080117, end: 20081027
  2. BLINDED PEGINTERFERON ALFA-2B (S-P) [Suspect]
     Indication: HEPATITIS C
     Dosage: 800 MG; QD; PO
     Route: 048
     Dates: start: 20080117, end: 20081030
  3. CORGARD [Concomitant]
  4. TRIVASTAL [Concomitant]
  5. CALTRATE [Concomitant]
  6. ACETAMINOPHEN [Concomitant]

REACTIONS (1)
  - POLYARTHRITIS [None]
